FAERS Safety Report 6748512-X (Version None)
Quarter: 2010Q2

REPORT INFORMATION
  Report Type: 
  Country: None (occurrence: None)
  Receive Date: 20100526
  Receipt Date: 20100510
  Transmission Date: 20101027
  Serious: No
  Sender: FDA-Public Use
  Company Number: 2010-00447

PATIENT
  Age: 29 Year
  Sex: Female
  Weight: 90.7194 kg

DRUGS (5)
  1. ZICAM COLD REMEDY GEL SWABS [Suspect]
     Dosage: COUPLE MOS. INTRANASAL
  2. PROZAC [Concomitant]
  3. PREDNISONE TAB [Concomitant]
  4. FLEXERIL [Concomitant]
  5. LORTAB [Concomitant]

REACTIONS (1)
  - ANOSMIA [None]
